FAERS Safety Report 8064390-3 (Version None)
Quarter: 2012Q1

REPORT INFORMATION
  Report Type: 
  Country: None (occurrence: None)
  Receive Date: 20120123
  Receipt Date: 20120118
  Transmission Date: 20120608
  Serious: Yes (Death)
  Sender: FDA-Public Use
  Company Number: CH-ASTRAZENECA-2012SE03480

PATIENT
  Age: 30 Year
  Sex: Female

DRUGS (14)
  1. OXAZEPAM [Suspect]
     Indication: ALCOHOLISM
     Route: 048
     Dates: start: 20091101
  2. OXAZEPAM [Suspect]
     Indication: MENTAL DISORDER
     Route: 048
     Dates: start: 20091101
  3. BECOZYME [Concomitant]
     Indication: MENTAL DISORDER
     Route: 048
     Dates: start: 20111028
  4. SEROQUEL [Suspect]
     Indication: DRUG DEPENDENCE
     Route: 048
     Dates: start: 20111011
  5. SEROQUEL [Suspect]
     Indication: ABNORMAL BEHAVIOUR
     Route: 048
     Dates: start: 20111011
  6. OXAZEPAM [Suspect]
     Indication: ABNORMAL BEHAVIOUR
     Route: 048
     Dates: start: 20091101
  7. BENERVA [Concomitant]
     Indication: ALCOHOL USE
     Route: 048
     Dates: start: 20111027
  8. ALCOHOL [Suspect]
     Route: 048
     Dates: start: 20111104
  9. BENERVA [Concomitant]
     Indication: ABNORMAL BEHAVIOUR
     Route: 048
     Dates: start: 20111027
  10. ZOLPIDEM [Concomitant]
     Route: 048
     Dates: start: 20111001
  11. BECOZYME [Concomitant]
     Indication: ALCOHOL USE
     Route: 048
     Dates: start: 20111028
  12. SEROQUEL [Suspect]
     Indication: MENTAL DISORDER
     Route: 048
     Dates: start: 20111011
  13. BECOZYME [Concomitant]
     Indication: ABNORMAL BEHAVIOUR
     Route: 048
     Dates: start: 20111028
  14. BENERVA [Concomitant]
     Indication: MENTAL DISORDER
     Route: 048
     Dates: start: 20111027

REACTIONS (1)
  - SUDDEN DEATH [None]
